FAERS Safety Report 18777576 (Version 2)
Quarter: 2021Q1

REPORT INFORMATION
  Report Type: Spontaneous
  Country: TR (occurrence: TR)
  Receive Date: 20210122
  Receipt Date: 20210314
  Transmission Date: 20210419
  Serious: Yes (Other)
  Sender: FDA-Public Use
  Company Number: TR-ALXN-A202100570

PATIENT
  Age: 17 Year
  Sex: Female

DRUGS (3)
  1. SOLIRIS [Suspect]
     Active Substance: ECULIZUMAB
     Indication: COMPLEMENT FACTOR ABNORMAL
     Dosage: FOUR ECULIZUMAB DOSES GIVEN AS TWO INJECTIONS PER WEEK FOR TWO CONSECUTIVE WEEKS
     Route: 065
  2. SOLIRIS [Suspect]
     Active Substance: ECULIZUMAB
     Indication: OFF LABEL USE
     Dosage: THREE WEEKLY DOSES (TREATMENT DAYS 15, 22 AND 29)
     Route: 065
  3. SOLIRIS [Suspect]
     Active Substance: ECULIZUMAB
     Dosage: UNK UNK, Q2W
     Route: 065

REACTIONS (2)
  - Embolism [Unknown]
  - Off label use [Unknown]
